FAERS Safety Report 9205730 (Version 1)
Quarter: 2013Q2

REPORT INFORMATION
  Report Type: Spontaneous
  Country: GB (occurrence: None)
  Receive Date: 20130401
  Receipt Date: 20130401
  Transmission Date: 20140414
  Serious: Yes (Death, Hospitalization)
  Sender: FDA-Public Use
  Company Number: 2013-04996

PATIENT
  Sex: Female

DRUGS (2)
  1. CITALOPRAM HYDROBROMIDE [Suspect]
     Indication: DEPRESSION
     Route: 048
     Dates: start: 201208, end: 201212
  2. EPILIM (VALPROATE SODIUM) [Concomitant]

REACTIONS (3)
  - Cerebral haemorrhage [None]
  - Syncope [None]
  - Fall [None]
